FAERS Safety Report 5342438-4 (Version None)
Quarter: 2007Q2

REPORT INFORMATION
  Report Type: 
  Country: None (occurrence: None)
  Receive Date: 20070601
  Receipt Date: 20070530
  Transmission Date: 20071010
  Serious: Yes (Death, Other)
  Sender: FDA-Public Use
  Company Number: US-BRISTOL-MYERS SQUIBB COMPANY-13797576

PATIENT
  Age: 66 Year
  Sex: Female

DRUGS (4)
  1. COUMADIN [Suspect]
  2. PLAVIX [Suspect]
     Route: 048
  3. ASPIRIN [Concomitant]
  4. COREG [Concomitant]

REACTIONS (3)
  - DEATH [None]
  - FOAMING AT MOUTH [None]
  - LOSS OF CONSCIOUSNESS [None]
